FAERS Safety Report 9539658 (Version 1)
Quarter: 2013Q2

REPORT INFORMATION
  Report Type: Spontaneous
  Country: US (occurrence: None)
  Receive Date: 20130521
  Receipt Date: 20130521
  Transmission Date: 20140414
  Serious: No
  Sender: FDA-Public Use
  Company Number: 1000042544

PATIENT
  Age: 67 Year
  Sex: Female

DRUGS (3)
  1. TUDORZA PRESSAIR [Suspect]
     Indication: EMPHYSEMA
     Dosage: 800UG (400 UG, 2 IN 1 D), RESPIRATORY
     Route: 055
     Dates: start: 20130124, end: 20130203
  2. TUDORZA PRESSAIR [Suspect]
     Indication: EMPHYSEMA
     Dosage: 800UG (400 UG, 2 IN 1 D), RESPIRATORY
     Route: 055
  3. CHOLESTYRAMINE (COLESTYRAMINE) (COLESTYRAMINE) [Concomitant]

REACTIONS (1)
  - Diarrhoea [None]
